FAERS Safety Report 10270219 (Version 2)
Quarter: 2015Q1

REPORT INFORMATION
  Report Type: Spontaneous
  Country: US (occurrence: None)
  Receive Date: 20140626
  Receipt Date: 20150209
  Transmission Date: 20150720
  Serious: Yes (Other)
  Sender: FDA-Public Use
  Company Number: UNT-2014-002505

PATIENT
  Sex: Male

DRUGS (1)
  1. REMODULIN [Suspect]
     Active Substance: TREPROSTINIL
     Indication: COR PULMONALE CHRONIC
     Route: 042
     Dates: start: 20070130

REACTIONS (5)
  - Pulmonary embolism [None]
  - Septic embolus [None]
  - Bacteraemia [None]
  - Lung infection [None]
  - Device related sepsis [None]

NARRATIVE: CASE EVENT DATE: 20140611
